FAERS Safety Report 8353284-1 (Version None)
Quarter: 2012Q2

REPORT INFORMATION
  Report Type: 
  Country: None (occurrence: None)
  Receive Date: 20120509
  Receipt Date: 20120424
  Transmission Date: 20120825
  Serious: Yes (Hospitalization, Other)
  Sender: FDA-Public Use
  Company Number: 2012-00697

PATIENT
  Age: 54 Year
  Sex: Male
  Weight: 97.5234 kg

DRUGS (5)
  1. SOTALOL HCL [Concomitant]
  2. RAMIPRIL [Suspect]
     Indication: CARDIAC FAILURE CONGESTIVE
     Dosage: 5 MG (5 MG, 1 IN 1 D), PER ORAL
     Route: 048
     Dates: start: 20120404
  3. EFFIENT [Concomitant]
  4. OMEPRAZOLE (PRILOSEC) [Concomitant]
  5. WARFARIN SODIUM [Concomitant]

REACTIONS (4)
  - DIARRHOEA [None]
  - CARDIAC PACEMAKER INSERTION [None]
  - NAUSEA [None]
  - ERECTILE DYSFUNCTION [None]
